FAERS Safety Report 7503389-X (Version None)
Quarter: 2011Q2

REPORT INFORMATION
  Report Type: 
  Country: None (occurrence: None)
  Receive Date: 20110525
  Receipt Date: 20110513
  Transmission Date: 20111010
  Serious: Yes (Hospitalization, Congenital Anomaly)
  Sender: FDA-Public Use
  Company Number: A0928664A

PATIENT
  Sex: Male

DRUGS (3)
  1. SEROQUEL [Concomitant]
     Indication: BIPOLAR DISORDER
     Route: 064
  2. TOBACCO [Concomitant]
     Route: 064
  3. PAXIL [Suspect]
     Indication: BIPOLAR DISORDER
     Route: 064

REACTIONS (3)
  - DRUG EXPOSURE DURING PREGNANCY [None]
  - EYELID PTOSIS CONGENITAL [None]
  - CLEFT LIP AND PALATE [None]
